FAERS Safety Report 18949404 (Version 1)
Quarter: 2021Q1

REPORT INFORMATION
  Report Type: Spontaneous
  Country: US (occurrence: US)
  Receive Date: 20210227
  Receipt Date: 20210227
  Transmission Date: 20210420
  Serious: No
  Sender: FDA-Public Use
  Company Number: US-ROCHE-2600896

PATIENT
  Age: 52 Year
  Sex: Female

DRUGS (2)
  1. XOLAIR [Suspect]
     Active Substance: OMALIZUMAB
     Indication: ASTHMA
     Dosage: 150MG/ML?PRE FILLED SYRINGE
     Route: 058
     Dates: start: 20200416
  2. XOLAIR [Suspect]
     Active Substance: OMALIZUMAB
     Dosage: 75MG/0.5ML?ONGOING: YES
     Route: 058
     Dates: start: 202004

REACTIONS (2)
  - Burning sensation [Unknown]
  - Pain [Unknown]

NARRATIVE: CASE EVENT DATE: 202004
